FAERS Safety Report 20673882 (Version 2)
Quarter: 2022Q2

REPORT INFORMATION
  Report Type: Spontaneous
  Country: US (occurrence: US)
  Receive Date: 20220405
  Receipt Date: 20220504
  Transmission Date: 20220721
  Serious: Yes (Other)
  Sender: FDA-Public Use
  Company Number: US-ALLERGAN-2209889US

PATIENT
  Sex: Female
  Weight: 68.038 kg

DRUGS (4)
  1. REFRESH OPTIVE MEGA-3 [Suspect]
     Active Substance: CARBOXYMETHYLCELLULOSE SODIUM\GLYCERIN\POLYSORBATE 80
     Indication: Dry eye
     Dosage: 10 DF, QD
     Route: 047
     Dates: start: 202111, end: 202203
  2. ALEVE [Concomitant]
     Active Substance: NAPROXEN SODIUM
     Indication: Headache
     Dosage: UNK UNK, PRN
  3. ARMOUR THYROID [Concomitant]
     Active Substance: THYROID, PORCINE
     Indication: Thyroidectomy
     Dosage: 1 DF, QD
     Route: 048
     Dates: start: 1964
  4. JANSSEN COVID-19 VACCINE [Concomitant]
     Active Substance: AD26.COV2.S
     Indication: COVID-19 immunisation
     Dosage: UNK
     Route: 030
     Dates: start: 2021, end: 2021

REACTIONS (12)
  - Macular degeneration [Not Recovered/Not Resolved]
  - Blindness [Not Recovered/Not Resolved]
  - Visual impairment [Not Recovered/Not Resolved]
  - Blood pressure increased [Recovered/Resolved]
  - Feeling abnormal [Recovered/Resolved]
  - Corneal degeneration [Not Recovered/Not Resolved]
  - Blood potassium decreased [Recovered/Resolved]
  - Inappropriate schedule of product administration [Unknown]
  - Eye pain [Recovered/Resolved]
  - Eye pruritus [Recovered/Resolved]
  - Eye irritation [Recovered/Resolved]
  - Product formulation issue [Unknown]

NARRATIVE: CASE EVENT DATE: 20211101
